FAERS Safety Report 4682572-5 (Version None)
Quarter: 2005Q2

REPORT INFORMATION
  Report Type: 
  Country: None (occurrence: None)
  Receive Date: 20050606
  Receipt Date: 20050525
  Transmission Date: 20051028
  Serious: Yes (Other)
  Sender: FDA-Public Use
  Company Number: US-SANOFI-SYNTHELABO-A03200501580

PATIENT

DRUGS (3)
  1. ELOXATIN [Suspect]
     Indication: NEOPLASM MALIGNANT
     Route: 042
  2. LEUCOVORIN [Suspect]
     Indication: NEOPLASM MALIGNANT
     Dosage: UNK
     Route: 042
  3. FLUOROURACIL [Suspect]
     Indication: NEOPLASM MALIGNANT
     Dosage: UNK
     Route: 042

REACTIONS (1)
  - BLINDNESS TRANSIENT [None]
